FAERS Safety Report 4475119-X (Version None)
Quarter: 2004Q4

REPORT INFORMATION
  Report Type: 
  Country: None (occurrence: None)
  Receive Date: 20041013
  Receipt Date: 20041013
  Transmission Date: 20050328
  Serious: Yes (Life-Threatening, Hospitalization)
  Sender: FDA-Public Use
  Company Number: None

PATIENT
  Age: 45 Year
  Sex: Male
  Weight: 94.8018 kg

DRUGS (1)
  1. OXYCODONE ER [Suspect]
     Indication: PAIN
     Dates: start: 20040712, end: 20040714

REACTIONS (6)
  - COUGH [None]
  - OEDEMA PERIPHERAL [None]
  - PHARYNGOLARYNGEAL PAIN [None]
  - PRURITUS [None]
  - SWELLING FACE [None]
  - URTICARIA [None]
